FAERS Safety Report 24335670 (Version 1)
Quarter: 2024Q3

REPORT INFORMATION
  Report Type: Spontaneous
  Country: US (occurrence: US)
  Receive Date: 20240919
  Receipt Date: 20240919
  Transmission Date: 20241017
  Serious: Yes (Hospitalization, Other)
  Sender: EMCURE
  Company Number: US-AVET LIFESCIENCES LTD-2024-AVET-000321

PATIENT
  Age: 56 Year
  Sex: Female

DRUGS (5)
  1. NIMODIPINE [Suspect]
     Active Substance: NIMODIPINE
     Indication: Deafness neurosensory
     Dosage: 60 MILLIGRAM, ONE-TIME DOSE
     Route: 048
  2. PROPOFOL [Concomitant]
     Active Substance: PROPOFOL
     Indication: Endotracheal intubation
     Dosage: 60-125 MCG/KG/MIN
  3. REMIFENTANIL [Concomitant]
     Active Substance: REMIFENTANIL
     Indication: Maintenance of anaesthesia
     Dosage: 0.2 MCG/KG/MIN
  4. APREPITANT [Concomitant]
     Active Substance: APREPITANT
     Indication: Prophylaxis of nausea and vomiting
     Dosage: 40 MILLIGRAM
  5. SUCCINYLCHOLINE [Concomitant]
     Active Substance: SUCCINYLCHOLINE\SUCCINYLCHOLINE CHLORIDE
     Indication: Endotracheal intubation
     Dosage: UNK

REACTIONS (2)
  - Toxicity to various agents [Recovered/Resolved]
  - Distributive shock [Recovered/Resolved]
